FAERS Safety Report 10181723 (Version 1)
Quarter: 2014Q2

REPORT INFORMATION
  Report Type: Spontaneous
  Country: US (occurrence: US)
  Receive Date: 20140519
  Receipt Date: 20140519
  Transmission Date: 20141212
  Serious: No
  Sender: FDA-Public Use
  Company Number: US-BANPHARM-20131543

PATIENT
  Age: 76 Year
  Sex: Female
  Weight: 58.97 kg

DRUGS (7)
  1. IBUPROFEN CAPSULES 200 MG [Suspect]
     Indication: ARTHRALGIA
     Dosage: 1 DF, QD,
     Route: 048
  2. LOSARTAN [Concomitant]
     Dosage: 10 MG, ONCE A DAY,
  3. BABY ASPIRIN [Concomitant]
     Dosage: 81 MG, ONCE A DAY,
  4. ALPRAZOLAM [Concomitant]
     Dosage: 0.5 MG, ONCE A DAY,
  5. ESCITALOPRAM [Concomitant]
     Dosage: 10 MG, ONCE A DAY,
  6. VITAMINS [Concomitant]
  7. EQUATE LORATIDINE ALLERGY RELIEF [Concomitant]

REACTIONS (1)
  - Pruritus generalised [Recovered/Resolved]
